FAERS Safety Report 6366621-4 (Version None)
Quarter: 2009Q3

REPORT INFORMATION
  Report Type: 
  Country: None (occurrence: None)
  Receive Date: 20090921
  Receipt Date: 20090909
  Transmission Date: 20100115
  Serious: Yes (Hospitalization)
  Sender: FDA-Public Use
  Company Number: PHHY2009US38714

PATIENT
  Age: 86 Year
  Sex: Male

DRUGS (6)
  1. OCTREOTIDE ACETATE [Suspect]
     Indication: HYPOGLYCAEMIA
     Dosage: 100 UG/HR, UNK
  2. METOPROLOL TARTRATE [Suspect]
     Dosage: 200 MG, QD
     Route: 048
  3. DIAZOXIDE [Concomitant]
     Indication: HYPOGLYCAEMIA
     Dosage: 100 MG, QD
     Route: 048
  4. HYDROCHLOROTHIAZIDE [Concomitant]
     Dosage: 12.5 MG, QD
     Route: 048
  5. PHENYTOIN [Concomitant]
     Dosage: 400 MG, QD
     Route: 048
  6. DEXTROSE [Concomitant]
     Dosage: 10 %, UNK

REACTIONS (1)
  - HYPOGLYCAEMIA [None]
